FAERS Safety Report 8132404-8 (Version None)
Quarter: 2012Q1

REPORT INFORMATION
  Report Type: 
  Country: None (occurrence: None)
  Receive Date: 20120213
  Receipt Date: 20120201
  Transmission Date: 20120608
  Serious: Yes (Hospitalization)
  Sender: FDA-Public Use
  Company Number: US-ELI_LILLY_AND_COMPANY-US201201002875

PATIENT
  Sex: Female
  Weight: 81.179 kg

DRUGS (8)
  1. COREG [Concomitant]
  2. ZAROXOLYN [Concomitant]
  3. MOBIC [Concomitant]
  4. FORTEO [Suspect]
     Indication: OSTEOPOROSIS
     Dosage: 20 UG, QD
     Route: 058
     Dates: start: 20110401
  5. POTASSIUM [Concomitant]
  6. ALLOPURINOL [Concomitant]
  7. ZOLPIDEM [Concomitant]
  8. TORSEMIDE [Concomitant]

REACTIONS (1)
  - DIVERTICULITIS [None]
